FAERS Safety Report 12999555 (Version 2)
Quarter: 2017Q2

REPORT INFORMATION
  Report Type: Spontaneous
  Country: US (occurrence: US)
  Receive Date: 20161205
  Receipt Date: 20170501
  Transmission Date: 20170830
  Serious: No
  Sender: FDA-Public Use
  Company Number: US-TEVA-712888USA

PATIENT
  Age: 39 Year
  Sex: Female
  Weight: 71.28 kg

DRUGS (1)
  1. SEASONIQUE [Suspect]
     Active Substance: ETHINYL ESTRADIOL\LEVONORGESTREL
     Indication: CONTRACEPTION
     Dosage: DAILY
     Route: 065
     Dates: start: 200812, end: 201612

REACTIONS (7)
  - Urticaria [Unknown]
  - Nausea [Unknown]
  - Pruritus [Unknown]
  - Hypersensitivity [Recovered/Resolved]
  - Swelling face [Unknown]
  - Abdominal distension [Unknown]
  - Hypersensitivity [Not Recovered/Not Resolved]

NARRATIVE: CASE EVENT DATE: 2016
